FAERS Safety Report 6162638-3 (Version None)
Quarter: 2009Q2

REPORT INFORMATION
  Report Type: 
  Country: None (occurrence: None)
  Receive Date: 20090421
  Receipt Date: 20080307
  Transmission Date: 20091009
  Serious: No
  Sender: FDA-Public Use
  Company Number: US-ASTRAZENECA-2008UW04769

PATIENT
  Age: 85 Year
  Sex: Male

DRUGS (2)
  1. CASODEX [Suspect]
     Route: 048
     Dates: start: 20070901
  2. LUPRON [Concomitant]
     Dosage: Q 4 MONTHS

REACTIONS (2)
  - COUGH [None]
  - LARYNGITIS [None]
